FAERS Safety Report 8024310-4 (Version None)
Quarter: 2011Q4

REPORT INFORMATION
  Report Type: 
  Country: None (occurrence: None)
  Receive Date: 20111130
  Receipt Date: 20110912
  Transmission Date: 20120403
  Serious: Yes (Other)
  Sender: FDA-Public Use
  Company Number: 334944

PATIENT
  Age: 32 Year
  Sex: Male
  Weight: 86.1834 kg

DRUGS (2)
  1. NOVOLOG [Suspect]
     Indication: TYPE 1 DIABETES MELLITUS
     Dosage: SLIDING SCALE, SUBCUTANEOUS
     Route: 058
     Dates: start: 20091001
  2. LANTUS [Concomitant]

REACTIONS (5)
  - HYPOGLYCAEMIC UNCONSCIOUSNESS [None]
  - VOMITING [None]
  - URINARY INCONTINENCE [None]
  - MALAISE [None]
  - HYPOGLYCAEMIA [None]
